FAERS Safety Report 22606507 (Version 1)
Quarter: 2023Q2

REPORT INFORMATION
  Report Type: Spontaneous
  Country: GB (occurrence: GB)
  Receive Date: 20230615
  Receipt Date: 20230615
  Transmission Date: 20230721
  Serious: Yes (Life-Threatening, Hospitalization, Other)
  Sender: FDA-Public Use
  Company Number: GB-MHRA-ADR 27977582

PATIENT
  Age: 56 Year
  Sex: Male
  Weight: 88 kg

DRUGS (2)
  1. NIVOLUMAB [Suspect]
     Active Substance: NIVOLUMAB
     Indication: Metastatic malignant melanoma
     Dates: start: 20230223, end: 20230428
  2. IPILIMUMAB [Suspect]
     Active Substance: IPILIMUMAB
     Indication: Metastatic malignant melanoma
     Dates: start: 20230223, end: 20230428

REACTIONS (1)
  - Venoocclusive liver disease [Not Recovered/Not Resolved]

NARRATIVE: CASE EVENT DATE: 20230524
